FAERS Safety Report 9728002 (Version 1)
Quarter: 2013Q4

REPORT INFORMATION
  Report Type: Spontaneous
  Country: US (occurrence: US)
  Receive Date: 20131204
  Receipt Date: 20131204
  Transmission Date: 20140711
  Serious: No
  Sender: FDA-Public Use
  Company Number: US-B.I. PHARMACEUTICALS,INC./RIDGEFIELD-2013-BI-38768BP

PATIENT
  Sex: Male
  Weight: 93 kg

DRUGS (1)
  1. FLOMAX CAPSULES [Suspect]
     Indication: DYSURIA
     Dosage: 0.4 MG
     Route: 048
     Dates: end: 2009

REACTIONS (1)
  - Cataract [Recovered/Resolved with Sequelae]
